FAERS Safety Report 6255824-5 (Version None)
Quarter: 2009Q3

REPORT INFORMATION
  Report Type: 
  Country: None (occurrence: None)
  Receive Date: 20090703
  Receipt Date: 20090622
  Transmission Date: 20100115
  Serious: Yes (Death)
  Sender: FDA-Public Use
  Company Number: US-PFIZER INC-2009214674

PATIENT
  Sex: Male

DRUGS (1)
  1. NEURONTIN [Suspect]

REACTIONS (1)
  - NEOPLASM MALIGNANT [None]
